FAERS Safety Report 20578435 (Version 1)
Quarter: 2022Q1

REPORT INFORMATION
  Report Type: Spontaneous
  Country: US (occurrence: US)
  Receive Date: 20220310
  Receipt Date: 20220310
  Transmission Date: 20220423
  Serious: No
  Sender: FDA-Public Use
  Company Number: US-TERSERA THERAPEUTICS LLC-2021TRS003399

PATIENT

DRUGS (4)
  1. XERMELO [Suspect]
     Active Substance: TELOTRISTAT ETHYL
     Indication: Carcinoid syndrome
     Dosage: 250 MG, TID
     Route: 048
     Dates: start: 20210621
  2. XERMELO [Suspect]
     Active Substance: TELOTRISTAT ETHYL
     Indication: Carcinoid tumour
     Dosage: 250 MG, QD (DAILY) (DOSE DECREASED)
     Route: 048
  3. XERMELO [Suspect]
     Active Substance: TELOTRISTAT ETHYL
     Dosage: 250 MG 1-2 TABLETS  DAILY
     Route: 048
  4. LANREOTIDE [Suspect]
     Active Substance: LANREOTIDE
     Indication: Product used for unknown indication
     Dosage: UNK
     Route: 065

REACTIONS (8)
  - Myalgia [Recovering/Resolving]
  - Feeling abnormal [Recovering/Resolving]
  - Pain [Unknown]
  - Ill-defined disorder [Unknown]
  - Fatigue [Recovering/Resolving]
  - Headache [Unknown]
  - Somnolence [Recovering/Resolving]
  - Insomnia [Unknown]
